FAERS Safety Report 12887372 (Version 2)
Quarter: 2016Q4

REPORT INFORMATION
  Report Type: Spontaneous
  Country: PL (occurrence: PL)
  Receive Date: 20161026
  Receipt Date: 20161101
  Transmission Date: 20170207
  Serious: Yes (Death, Other)
  Sender: FDA-Public Use
  Company Number: PL-B.I. PHARMACEUTICALS,INC./RIDGEFIELD-2016-BI-066734

PATIENT
  Age: 42 Year
  Sex: Male
  Weight: 80 kg

DRUGS (1)
  1. PRAXBIND [Suspect]
     Active Substance: IDARUCIZUMAB
     Indication: LAPAROTOMY
     Route: 065
     Dates: start: 20161011

REACTIONS (2)
  - Death [Fatal]
  - Cardiac arrest [Unknown]

NARRATIVE: CASE EVENT DATE: 20161012
